FAERS Safety Report 15458705 (Version 1)
Quarter: 2018Q4

REPORT INFORMATION
  Report Type: Spontaneous
  Country: US (occurrence: US)
  Receive Date: 20181001
  Receipt Date: 20181001
  Transmission Date: 20190204
  Serious: Yes (Hospitalization)
  Sender: FDA-Public Use
  Company Number: None

PATIENT
  Age: 62 Year
  Sex: Female

DRUGS (22)
  1. FUROSEMIDE/METOPROL SUC [Concomitant]
  2. PANTOPRAZOLE/PREDNISONE [Concomitant]
  3. PROPANOLOL/RIZATRIPTAN [Concomitant]
  4. HYDRDOXYZ HCL [Concomitant]
  5. CHOLESTYRAM [Concomitant]
     Active Substance: CHOLESTYRAMINE
  6. CIPRODEX [Concomitant]
     Active Substance: CIPROFLOXACIN HYDROCHLORIDE\DEXAMETHASONE
  7. FAMOTIDINE. [Concomitant]
     Active Substance: FAMOTIDINE
  8. METHYLPRED/AMLODIPINE [Concomitant]
  9. HYDROCO/APAP [Concomitant]
     Active Substance: ACETAMINOPHEN\HYDROCODONE
  10. DICYCLOMINE [Concomitant]
     Active Substance: DICYCLOMINE HYDROCHLORIDE
  11. RIZATRIPTAN. [Concomitant]
     Active Substance: RIZATRIPTAN
  12. GABAPENTIN. [Concomitant]
     Active Substance: GABAPENTIN
  13. METFORMIN [Concomitant]
     Active Substance: METFORMIN HYDROCHLORIDE
  14. VIBERZI [Concomitant]
     Active Substance: ELUXADOLINE
  15. XELJANZ [Suspect]
     Active Substance: TOFACITINIB CITRATE
     Indication: RHEUMATOID ARTHRITIS
     Route: 048
     Dates: start: 20160216
  16. CELECOXIB. [Concomitant]
     Active Substance: CELECOXIB
  17. ALPRAZOLAM/ESTRADIOL CRE [Concomitant]
  18. POLYETH GLYC POW/PRAVASTATIN [Concomitant]
  19. PREMARIN VAG CRE [Concomitant]
  20. OSPHENA [Concomitant]
     Active Substance: OSPEMIFENE
  21. FLUTICASONE. [Concomitant]
     Active Substance: FLUTICASONE
  22. FLUCONAZOLE. [Concomitant]
     Active Substance: FLUCONAZOLE

REACTIONS (1)
  - Therapy cessation [None]

NARRATIVE: CASE EVENT DATE: 20180903
